FAERS Safety Report 8908117 (Version 1)
Quarter: 2012Q4

REPORT INFORMATION
  Report Type: 
  Country: US (occurrence: US)
  Receive Date: 20121113
  Receipt Date: 20121113
  Transmission Date: 20130627
  Serious: No
  Sender: FDA-Public Use
  Company Number: US-AMGEN-USASP2012034740

PATIENT
  Age: 72 Year
  Sex: Male

DRUGS (2)
  1. ARANESP [Suspect]
     Indication: RENAL FAILURE CHRONIC
     Dosage: 100 mug, q3wk
     Dates: end: 201204
  2. ARANESP [Suspect]
     Dosage: 100 mug, qmo
     Dates: start: 2001

REACTIONS (2)
  - Sluggishness [Not Recovered/Not Resolved]
  - Haemoglobin abnormal [Recovered/Resolved]
